FAERS Safety Report 23780309 (Version 2)
Quarter: 2024Q2

REPORT INFORMATION
  Report Type: Report from Study
  Country: BE (occurrence: BE)
  Receive Date: 20240424
  Receipt Date: 20240515
  Transmission Date: 20240716
  Serious: Yes (Other)
  Sender: FDA-Public Use
  Company Number: BE-JNJFOC-20231121587

PATIENT
  Age: 3 Decade
  Sex: Female
  Weight: 43 kg

DRUGS (18)
  1. SELEXIPAG [Suspect]
     Active Substance: SELEXIPAG
     Indication: Pulmonary arterial hypertension
     Route: 048
     Dates: start: 20210606, end: 20210613
  2. SELEXIPAG [Suspect]
     Active Substance: SELEXIPAG
     Route: 048
     Dates: start: 20210613, end: 20210620
  3. SELEXIPAG [Suspect]
     Active Substance: SELEXIPAG
     Route: 048
     Dates: start: 20210620, end: 20210706
  4. SELEXIPAG [Suspect]
     Active Substance: SELEXIPAG
     Route: 048
     Dates: start: 20210706, end: 20210716
  5. SELEXIPAG [Suspect]
     Active Substance: SELEXIPAG
     Route: 048
     Dates: start: 20210716, end: 20210927
  6. SELEXIPAG [Suspect]
     Active Substance: SELEXIPAG
     Route: 048
     Dates: start: 20230307, end: 20230313
  7. MACITENTAN [Suspect]
     Active Substance: MACITENTAN
     Indication: Pulmonary arterial hypertension
     Route: 048
     Dates: start: 20210114
  8. MACITENTAN [Suspect]
     Active Substance: MACITENTAN
     Indication: Pulmonary arterial hypertension
  9. SILDENAFIL [Concomitant]
     Active Substance: SILDENAFIL
     Indication: Pulmonary arterial hypertension
     Route: 048
     Dates: start: 20230810
  10. SILDENAFIL [Concomitant]
     Active Substance: SILDENAFIL
     Route: 048
     Dates: start: 20200708, end: 20230704
  11. RIOCIGUAT [Concomitant]
     Active Substance: RIOCIGUAT
     Indication: Pulmonary arterial hypertension
     Route: 042
     Dates: start: 20230711, end: 20230810
  12. EPOPROSTENOL [Concomitant]
     Active Substance: EPOPROSTENOL
     Indication: Pulmonary arterial hypertension
     Route: 065
     Dates: start: 20210928, end: 20211001
  13. EPOPROSTENOL [Concomitant]
     Active Substance: EPOPROSTENOL
     Route: 065
     Dates: start: 20211001, end: 20211004
  14. EPOPROSTENOL [Concomitant]
     Active Substance: EPOPROSTENOL
     Route: 065
     Dates: start: 20211004, end: 20211011
  15. EPOPROSTENOL [Concomitant]
     Active Substance: EPOPROSTENOL
     Route: 065
     Dates: start: 20211130, end: 20211203
  16. EPOPROSTENOL [Concomitant]
     Active Substance: EPOPROSTENOL
     Route: 065
     Dates: start: 20211203, end: 20220107
  17. EPOPROSTENOL [Concomitant]
     Active Substance: EPOPROSTENOL
     Route: 065
     Dates: start: 20220107, end: 20220124
  18. EPOPROSTENOL [Concomitant]
     Active Substance: EPOPROSTENOL
     Route: 065
     Dates: start: 20211011, end: 20211130

REACTIONS (12)
  - Melaena [Not Recovered/Not Resolved]
  - Muscular weakness [Unknown]
  - Hypoglycaemia [Not Recovered/Not Resolved]
  - Abdominal pain upper [Recovered/Resolved with Sequelae]
  - Nausea [Recovered/Resolved with Sequelae]
  - Decreased appetite [Recovered/Resolved with Sequelae]
  - Supraventricular tachycardia [Not Recovered/Not Resolved]
  - Pollakiuria [Not Recovered/Not Resolved]
  - Vertigo [Not Recovered/Not Resolved]
  - Middle insomnia [Not Recovered/Not Resolved]
  - Asthenia [Not Recovered/Not Resolved]
  - Nocturia [Unknown]

NARRATIVE: CASE EVENT DATE: 20220725
